FAERS Safety Report 8409566-8 (Version None)
Quarter: 2012Q2

REPORT INFORMATION
  Report Type: 
  Country: None (occurrence: None)
  Receive Date: 20120323
  Receipt Date: 20110127
  Transmission Date: 20120825
  Serious: Yes (Other)
  Sender: FDA-Public Use
  Company Number: 163-21880-11010380

PATIENT
  Age: 69 Year
  Sex: Male

DRUGS (1)
  1. REVLIMID [Suspect]
     Indication: POLYCYTHAEMIA VERA
     Dosage: 5 MG, QD X 21 DAYS, PO
     Route: 048
     Dates: start: 20100812

REACTIONS (2)
  - SYNCOPE [None]
  - DIZZINESS [None]
